FAERS Safety Report 16656324 (Version 1)
Quarter: 2019Q3

REPORT INFORMATION
  Report Type: Spontaneous
  Country: US (occurrence: US)
  Receive Date: 20190801
  Receipt Date: 20190801
  Transmission Date: 20191004
  Serious: No
  Sender: FDA-Public Use
  Company Number: US-PACIRA-201700116

PATIENT
  Age: 68 Year
  Sex: Female

DRUGS (1)
  1. EXPAREL [Suspect]
     Active Substance: BUPIVACAINE
     Indication: POSTOPERATIVE ANALGESIA
     Dosage: UNK, SINGLE, FREQUENCY : SINGLE
     Route: 065
     Dates: start: 20171208, end: 20171208

REACTIONS (4)
  - Back pain [Not Recovered/Not Resolved]
  - Flushing [Not Recovered/Not Resolved]
  - Body temperature increased [Not Recovered/Not Resolved]
  - Eye irritation [Not Recovered/Not Resolved]
